FAERS Safety Report 5440492-2 (Version None)
Quarter: 2007Q3

REPORT INFORMATION
  Report Type: 
  Country: None (occurrence: None)
  Receive Date: 20070831
  Receipt Date: 20070820
  Transmission Date: 20080115
  Serious: Yes (Death)
  Sender: FDA-Public Use
  Company Number: CN-ROCHE-512491

PATIENT
  Age: 20 Year
  Sex: Female

DRUGS (1)
  1. ROCEPHIN [Suspect]
     Indication: INFECTION PROPHYLAXIS
     Dosage: ROUTE REPORTED:I.V.GTT FORM REPORTED: VIAL (INJECTION)
     Route: 042
     Dates: start: 20070101, end: 20070101

REACTIONS (2)
  - CARDIAC FAILURE [None]
  - RASH [None]
